FAERS Safety Report 10380203 (Version 1)
Quarter: 2014Q3

REPORT INFORMATION
  Report Type: Spontaneous
  Country: IE (occurrence: IE)
  Receive Date: 20140813
  Receipt Date: 20140813
  Transmission Date: 20150326
  Serious: Yes (Death)
  Sender: FDA-Public Use
  Company Number: IE-AMGEN-IRLSP2014060946

PATIENT
  Age: 80 Year
  Sex: Male

DRUGS (11)
  1. OROVITE [Concomitant]
  2. ONE ALPHA [Concomitant]
     Active Substance: ALFACALCIDOL
  3. ARANESP [Suspect]
     Active Substance: DARBEPOETIN ALFA
     Indication: RENAL FAILURE CHRONIC
     Dosage: 30 MUG, UNK
     Route: 058
     Dates: start: 20120731
  4. RENVELA [Concomitant]
     Active Substance: SEVELAMER CARBONATE
  5. BURINEX [Concomitant]
     Active Substance: BUMETANIDE
  6. NEPRO                              /07459601/ [Concomitant]
  7. SODIUM BICARBONATE. [Concomitant]
     Active Substance: SODIUM BICARBONATE
  8. DIOVAN [Concomitant]
     Active Substance: VALSARTAN
  9. OSVAREN [Concomitant]
     Active Substance: CALCIUM ACETATE\MAGNESIUM CARBONATE
  10. MOTILIUM [Concomitant]
     Active Substance: DOMPERIDONE
  11. NEXAZOLE [Concomitant]

REACTIONS (1)
  - Death [Fatal]

NARRATIVE: CASE EVENT DATE: 20140707
